FAERS Safety Report 7648653-9 (Version None)
Quarter: 2011Q3

REPORT INFORMATION
  Report Type: 
  Country: None (occurrence: None)
  Receive Date: 20110801
  Receipt Date: 20110729
  Transmission Date: 20111222
  Serious: No
  Sender: FDA-Public Use
  Company Number: US-PFIZER INC-2011173581

PATIENT
  Sex: Female

DRUGS (2)
  1. ZOLOFT [Suspect]
     Indication: ANXIETY
     Dosage: 12.5 MG, UNK
     Route: 048
     Dates: start: 20110722
  2. LUNESTA [Concomitant]
     Indication: SLEEP DISORDER
     Dosage: UNK

REACTIONS (3)
  - NAUSEA [None]
  - VOMITING [None]
  - MALAISE [None]
